FAERS Safety Report 6824051-2 (Version None)
Quarter: 2010Q3

REPORT INFORMATION
  Report Type: 
  Country: None (occurrence: None)
  Receive Date: 20100708
  Receipt Date: 20061201
  Transmission Date: 20110219
  Serious: No
  Sender: FDA-Public Use
  Company Number: US-PFIZER INC-2006117675

PATIENT
  Sex: Male
  Weight: 122.47 kg

DRUGS (8)
  1. CHANTIX [Suspect]
     Indication: SMOKING CESSATION THERAPY
     Dates: start: 20060922
  2. CYMBALTA [Concomitant]
  3. LYRICA [Concomitant]
  4. GABAPENTIN [Concomitant]
  5. LISINOPRIL [Concomitant]
  6. HYDROCHLOROTHIAZIDE [Concomitant]
  7. LORCET-HD [Concomitant]
     Indication: PAIN
  8. ACIPHEX [Concomitant]
     Dates: end: 20060901

REACTIONS (12)
  - ERUCTATION [None]
  - FEELING ABNORMAL [None]
  - FLATULENCE [None]
  - GASTROENTERITIS VIRAL [None]
  - HOT FLUSH [None]
  - HYPERCHLORHYDRIA [None]
  - HYPOPHAGIA [None]
  - INSOMNIA [None]
  - NAUSEA [None]
  - RETCHING [None]
  - SALIVARY HYPERSECRETION [None]
  - VOMITING [None]
